FAERS Safety Report 6279614-2 (Version None)
Quarter: 2009Q3

REPORT INFORMATION
  Report Type: 
  Country: None (occurrence: None)
  Receive Date: 20090723
  Receipt Date: 20090716
  Transmission Date: 20100115
  Serious: Yes (Hospitalization, Disabling)
  Sender: FDA-Public Use
  Company Number: B0569082A

PATIENT
  Sex: Female
  Weight: 48 kg

DRUGS (11)
  1. VALTREX [Suspect]
     Indication: HERPES ZOSTER
     Dosage: 1000MG TWICE PER DAY
     Route: 048
     Dates: start: 20090323, end: 20090324
  2. FUROSEMIDE [Concomitant]
     Dosage: 160MG PER DAY
     Route: 048
  3. TANKARU [Concomitant]
     Dosage: 3000MG PER DAY
     Route: 048
  4. LOXOPROFEN [Concomitant]
     Indication: HERPES ZOSTER
     Dosage: 120MG PER DAY
     Route: 048
     Dates: start: 20090323, end: 20090324
  5. TAKEPRON [Concomitant]
     Dosage: 15MG PER DAY
     Route: 048
  6. THYRADIN S [Concomitant]
     Dosage: 50MCG PER DAY
     Route: 048
  7. LIPITOR [Concomitant]
     Dosage: 10MG PER DAY
     Route: 048
  8. PHOSBLOCK [Concomitant]
     Dosage: 3000MG PER DAY
     Route: 048
  9. SENNARIDE [Concomitant]
     Dosage: 24MG PER DAY
     Route: 048
  10. OLMETEC [Concomitant]
     Dosage: 20MG PER DAY
     Route: 048
  11. LENDORMIN [Concomitant]
     Dosage: .25MG PER DAY
     Route: 048

REACTIONS (3)
  - DISORIENTATION [None]
  - NAUSEA [None]
  - VOMITING [None]
